FAERS Safety Report 7382760 (Version 6)
Quarter: 2021Q4

REPORT INFORMATION
  Report Type: Spontaneous
  Country: GB (occurrence: GB)
  Receive Date: 20100503
  Receipt Date: 20211018
  Transmission Date: 20220303
  Serious: Yes (Life-Threatening, Hospitalization, Disabling, Other)
  Sender: FDA-Public Use
  Company Number: None

PATIENT
  Age: 55 Year
  Sex: Female
  Weight: 84 kg

DRUGS (3)
  1. SIMVASTATIN [Interacting]
     Active Substance: SIMVASTATIN
     Indication: Blood cholesterol increased
     Route: 048
     Dates: start: 200908, end: 20100405
  2. BEZAFIBRATE [Interacting]
     Active Substance: BEZAFIBRATE
     Indication: Blood cholesterol increased
     Route: 048
     Dates: start: 20090401, end: 20090501
  3. NIACIN [Interacting]
     Active Substance: NIACIN
     Indication: Product used for unknown indication
     Route: 048
     Dates: start: 20090501, end: 20090801

REACTIONS (8)
  - Drug-induced liver injury [Recovering/Resolving]
  - Acute kidney injury [Unknown]
  - Rhabdomyolysis [Recovering/Resolving]
  - Drug interaction [Unknown]
  - Myalgia [Unknown]
  - Jaundice [Unknown]
  - Muscular weakness [Unknown]
  - Autoimmune hepatitis [Unknown]

NARRATIVE: CASE EVENT DATE: 20100101
